FAERS Safety Report 8507175-3 (Version None)
Quarter: 2012Q3

REPORT INFORMATION
  Report Type: 
  Country: None (occurrence: None)
  Receive Date: 20120712
  Receipt Date: 20120702
  Transmission Date: 20120928
  Serious: Yes (Life-Threatening)
  Sender: FDA-Public Use
  Company Number: IT-FRI-1000036934

PATIENT
  Sex: Male

DRUGS (4)
  1. ESCITALOPRAM [Suspect]
     Indication: SUICIDE ATTEMPT
     Route: 048
     Dates: start: 20120625, end: 20120625
  2. MINIAS [Suspect]
     Indication: SUICIDE ATTEMPT
     Route: 048
     Dates: start: 20120625, end: 20120625
  3. LENDORMIN [Suspect]
     Indication: SUICIDE ATTEMPT
     Route: 048
     Dates: start: 20120625, end: 20120625
  4. OLANZAPINE [Suspect]
     Indication: SUICIDE ATTEMPT
     Route: 048
     Dates: start: 20120625, end: 20120625

REACTIONS (12)
  - MULTIPLE DRUG OVERDOSE INTENTIONAL [None]
  - SINUS BRADYCARDIA [None]
  - CARDIAC ARREST [None]
  - SINUS TACHYCARDIA [None]
  - ASPARTATE AMINOTRANSFERASE INCREASED [None]
  - BLOOD LACTIC ACID INCREASED [None]
  - INTENTIONAL OVERDOSE [None]
  - ALANINE AMINOTRANSFERASE INCREASED [None]
  - SUICIDE ATTEMPT [None]
  - BLOOD BICARBONATE DECREASED [None]
  - BUNDLE BRANCH BLOCK RIGHT [None]
  - BLOOD CREATININE INCREASED [None]
